FAERS Safety Report 4962636-9 (Version None)
Quarter: 2006Q1

REPORT INFORMATION
  Report Type: 
  Country: None (occurrence: None)
  Receive Date: 20060201
  Receipt Date: 20051104
  Transmission Date: 20060701
  Serious: No
  Sender: FDA-Public Use
  Company Number: 2005PV004105

PATIENT
  Age: 65 Year
  Sex: Male
  Weight: 109.9973 kg

DRUGS (9)
  1. BYETTA [Suspect]
     Indication: DIABETES MELLITUS NON-INSULIN-DEPENDENT
     Dosage: 5 MCG;BID;SC
     Route: 058
     Dates: start: 20051026
  2. AVANDIA [Concomitant]
  3. METFORMIN [Concomitant]
  4. GLUCOPHAGE [Concomitant]
  5. CARTIA XT [Concomitant]
  6. LIPITOR [Concomitant]
  7. BAYCOL [Concomitant]
  8. ASPIRIN [Concomitant]
  9. MULTI-VITAMIN [Concomitant]

REACTIONS (4)
  - DECREASED APPETITE [None]
  - INJECTION SITE BRUISING [None]
  - INJECTION SITE NODULE [None]
  - WEIGHT DECREASED [None]
